FAERS Safety Report 6384757-9 (Version None)
Quarter: 2009Q4

REPORT INFORMATION
  Report Type: 
  Country: None (occurrence: None)
  Receive Date: 20091001
  Receipt Date: 20090918
  Transmission Date: 20100525
  Serious: Yes (Death, Other)
  Sender: FDA-Public Use
  Company Number: NL-GENENTECH-228783

PATIENT
  Age: 53 Year
  Sex: Female

DRUGS (1)
  1. RITUXIMAB [Suspect]
     Indication: EPSTEIN-BARR VIRUS ASSOCIATED LYMPHOPROLIFERATIVE DISORDER
     Dosage: 375 MG/M2, 1/WEEK
     Route: 065
     Dates: start: 20041001

REACTIONS (6)
  - ASPERGILLOSIS [None]
  - B-LYMPHOCYTE COUNT DECREASED [None]
  - GRAFT VERSUS HOST DISEASE [None]
  - HEPATIC INFECTION FUNGAL [None]
  - MULTI-ORGAN FAILURE [None]
  - SEPSIS [None]
